FAERS Safety Report 8282472-8 (Version None)
Quarter: 2012Q2

REPORT INFORMATION
  Report Type: 
  Country: None (occurrence: None)
  Receive Date: 20120413
  Receipt Date: 20120413
  Transmission Date: 20120825
  Serious: Yes (Hospitalization)
  Sender: FDA-Public Use
  Company Number: FR-PFIZER INC-2012082586

PATIENT
  Age: 72 Year
  Sex: Female

DRUGS (18)
  1. BISOPROLOL FUMARATE AND HYDROCHLOROTHIAZIDE [Concomitant]
  2. FLUOROURACIL [Suspect]
     Indication: COLON CANCER METASTATIC
     Dosage: 50 MG/ML, UNK
     Route: 042
     Dates: start: 20120124, end: 20120126
  3. ZOFRAN [Concomitant]
     Indication: PREMEDICATION
     Dosage: 8 MG, UNK
  4. MAGNESIUM SULFATE [Concomitant]
     Indication: PREMEDICATION
  5. IMOVANE [Concomitant]
     Dosage: 1 DF A DAY
     Dates: start: 20120124, end: 20120125
  6. IRINOTECAN HCL [Suspect]
     Indication: COLON CANCER METASTATIC
     Dosage: 250 MG, SINGLE
     Route: 042
     Dates: start: 20120124, end: 20120124
  7. SOLU-MEDROL [Concomitant]
     Indication: PREMEDICATION
     Dosage: 40 MG
  8. EMEND [Concomitant]
     Indication: PREMEDICATION
     Dosage: 80 MG+125 MG FOR 3 DAYS
  9. ATARAX [Concomitant]
     Indication: PREMEDICATION
     Dosage: 25 MG, UNK
  10. VOGALENE [Concomitant]
     Dosage: 15 MG, UNK
     Dates: start: 20120125, end: 20120126
  11. CALCIUM GLUCONATE [Concomitant]
     Indication: PREMEDICATION
  12. ELOXATIN [Suspect]
     Indication: COLON CANCER METASTATIC
     Dosage: 140 MG, SINGLE
     Route: 042
     Dates: start: 20120124, end: 20120124
  13. CALCIUM FOLINATE [Concomitant]
     Dosage: 676 MG, UNK
     Dates: start: 20120124
  14. IRBESARTAN [Concomitant]
  15. DURAGESIC-100 [Concomitant]
     Dosage: 12 UG, UNK
     Dates: start: 20120126
  16. ATROPINE [Concomitant]
     Indication: PREMEDICATION
     Dosage: 1 AMPULE
  17. CELEBREX [Concomitant]
     Indication: INFLAMMATION
     Dosage: 200 MG, 1X/DAY
     Dates: start: 20120119
  18. CELEBREX [Concomitant]
     Indication: PYREXIA

REACTIONS (2)
  - BONE MARROW FAILURE [None]
  - DIARRHOEA [None]
